FAERS Safety Report 4462640-3 (Version None)
Quarter: 2004Q3

REPORT INFORMATION
  Report Type: 
  Country: None (occurrence: None)
  Receive Date: 20040929
  Receipt Date: 20040917
  Transmission Date: 20050211
  Serious: Yes (Other)
  Sender: FDA-Public Use
  Company Number: US_JNJFOC-20040906615

PATIENT
  Sex: 0

DRUGS (1)
  1. INFANTS' TYLENOL CONCENTRATED DROPS (ACETAMINOPHEN) SUSPENSION [Suspect]

REACTIONS (1)
  - DRUG DEPENDENCE [None]
